FAERS Safety Report 13939339 (Version 1)
Quarter: 2017Q3

REPORT INFORMATION
  Report Type: Report from Study
  Country: US (occurrence: US)
  Receive Date: 20170906
  Receipt Date: 20170906
  Transmission Date: 20171127
  Serious: Yes (Death, Other)
  Sender: FDA-Public Use
  Company Number: US-ROCHE-1989866

PATIENT
  Age: 55 Year
  Sex: Female

DRUGS (1)
  1. ALTEPLASE. [Suspect]
     Active Substance: ALTEPLASE
     Indication: PULMONARY EMBOLISM
     Dosage: OVER 2 HOURS (50 MG/HOUR)
     Route: 042

REACTIONS (2)
  - Deep vein thrombosis [Not Recovered/Not Resolved]
  - Tumour embolism [Fatal]
